FAERS Safety Report 17521636 (Version 2)
Quarter: 2020Q2

REPORT INFORMATION
  Report Type: Report from Study
  Country: IT (occurrence: IT)
  Receive Date: 20200310
  Receipt Date: 20200420
  Transmission Date: 20200713
  Serious: Yes (Life-Threatening, Other)
  Sender: FDA-Public Use
  Company Number: IT-AMGEN-ITACT2020039824

PATIENT
  Age: 55 Year
  Sex: Female

DRUGS (4)
  1. CARFILZOMIB [Suspect]
     Active Substance: CARFILZOMIB
     Indication: PLASMA CELL MYELOMA
     Dosage: 20 MILLIGRAM/SQ. METER, PER CHEMO REGIM
     Route: 042
     Dates: start: 20180115
  2. CARFILZOMIB [Suspect]
     Active Substance: CARFILZOMIB
     Dosage: 36 MILLIGRAM/SQ. METER, PER CHEMO REGIM
     Route: 042
  3. LENALIDOMIDE [Suspect]
     Active Substance: LENALIDOMIDE
     Indication: PLASMA CELL MYELOMA
     Dosage: 10 MILLIGRAM, PER CHEMO REGIM
     Route: 042
     Dates: start: 20180115
  4. CARFILZOMIB [Suspect]
     Active Substance: CARFILZOMIB
     Dosage: 35 MILLIGRAM/SQ. METER, PER CHEMO REGIM
     Route: 042

REACTIONS (1)
  - Invasive lobular breast carcinoma [Not Recovered/Not Resolved]

NARRATIVE: CASE EVENT DATE: 20200306
